FAERS Safety Report 5630669-5 (Version None)
Quarter: 2008Q1

REPORT INFORMATION
  Report Type: 
  Country: None (occurrence: None)
  Receive Date: 20080213
  Receipt Date: 20080201
  Transmission Date: 20080703
  Serious: Yes (Congenital Anomaly)
  Sender: FDA-Public Use
  Company Number: ADE2008-0115

PATIENT
  Sex: Male
  Weight: 3.0391 kg

DRUGS (6)
  1. ZIDOVUDINE [Suspect]
     Indication: HIV INFECTION
     Dosage: 600MG - DAILY - PO
     Route: 048
     Dates: start: 20041201, end: 20050308
  2. DARUNAVIR [Suspect]
     Indication: HIV INFECTION
     Dosage: 2 DOSES - DAILY - PO
     Route: 048
     Dates: start: 20041117, end: 20050308
  3. RITONAVIR [Suspect]
     Indication: HIV INFECTION
     Dosage: 100 MG - DAILY - PO
     Route: 048
     Dates: start: 20041117, end: 20050308
  4. LAMIVUDINE + ZIDOVUDINE [Suspect]
     Indication: HIV INFECTION
     Dosage: 2 DOSES - DAILY
  5. TENOFOVIR DISOPROXIL FUMARATE [Suspect]
     Indication: HIV INFECTION
     Dosage: 300MG - DAILY - PO
     Route: 048
     Dates: start: 20041201, end: 20050308
  6. FOSAMPRENAVIR CALCIUM [Suspect]
     Indication: HIV INFECTION
     Dosage: 2800MG - DAILY

REACTIONS (2)
  - DRUG EXPOSURE DURING PREGNANCY [None]
  - MICROGNATHIA [None]
